FAERS Safety Report 19462359 (Version 1)
Quarter: 2021Q2

REPORT INFORMATION
  Report Type: Spontaneous
  Country: FR (occurrence: FR)
  Receive Date: 20210625
  Receipt Date: 20210625
  Transmission Date: 20210717
  Serious: Yes (Hospitalization)
  Sender: FDA-Public Use
  Company Number: FR-TEVA-2021-FR-1925327

PATIENT
  Age: 73 Year
  Sex: Male
  Weight: 86 kg

DRUGS (12)
  1. INDAPAMIDE. [Suspect]
     Active Substance: INDAPAMIDE
     Indication: HYPERTENSION
     Dosage: 1.5MG
     Route: 048
     Dates: end: 20190402
  2. COVERAM [Suspect]
     Active Substance: AMLODIPINE\PERINDOPRIL
     Indication: HYPERTENSION
     Dosage: 1DF
     Route: 048
     Dates: end: 20190402
  3. EUPRESSYL [Concomitant]
     Active Substance: URAPIDIL
  4. HYPERIUM 1 MG, COMPRIME [Suspect]
     Active Substance: RILMENIDINE PHOSPHATE
     Indication: HYPERTENSION
     Dosage: 2DF
     Route: 048
     Dates: end: 20190402
  5. LASILIX SPECIAL 500 MG, COMPRIME SECABLE [Suspect]
     Active Substance: FUROSEMIDE
     Indication: HYPERTENSION
     Dosage: 1DF,SCORED
     Route: 048
     Dates: start: 20171003
  6. ALLOPURINOL. [Concomitant]
     Active Substance: ALLOPURINOL
  7. INSULINE [Concomitant]
     Active Substance: INSULIN NOS
  8. ARANESP [Concomitant]
     Active Substance: DARBEPOETIN ALFA
  9. TAHOR [Concomitant]
     Active Substance: ATORVASTATIN CALCIUM
  10. PANTOPRAZOLE [Concomitant]
     Active Substance: PANTOPRAZOLE
  11. KARDEGIC [Concomitant]
     Active Substance: ASPIRIN DL-LYSINE
  12. LEVOTHYROX [Concomitant]
     Active Substance: LEVOTHYROXINE

REACTIONS (1)
  - Acute kidney injury [Recovered/Resolved]

NARRATIVE: CASE EVENT DATE: 20190402
